FAERS Safety Report 8091983-X (Version None)
Quarter: 2012Q1

REPORT INFORMATION
  Report Type: 
  Country: None (occurrence: None)
  Receive Date: 20120129
  Receipt Date: 20111110
  Transmission Date: 20120608
  Serious: No
  Sender: FDA-Public Use
  Company Number: US-ABBOTT-11P-163-0868544-00

PATIENT
  Age: 35 Year
  Sex: Male

DRUGS (3)
  1. HUMIRA [Suspect]
     Indication: CROHN'S DISEASE
     Dates: start: 20110901, end: 20110927
  2. FERROUS SULFATE TAB [Concomitant]
     Indication: ANAEMIA
  3. BALSALAZIDE DISODIUM [Concomitant]
     Indication: CROHN'S DISEASE

REACTIONS (4)
  - SCROTAL SWELLING [None]
  - NASOPHARYNGITIS [None]
  - INFECTION [None]
  - SCROTAL PAIN [None]
